FAERS Safety Report 10881761 (Version 1)
Quarter: 2015Q1

REPORT INFORMATION
  Report Type: Spontaneous
  Country: DK (occurrence: DK)
  Receive Date: 20150303
  Receipt Date: 20150303
  Transmission Date: 20150721
  Serious: Yes (Death, Hospitalization)
  Sender: FDA-Public Use
  Company Number: DK-BAYER-2015-026916

PATIENT
  Age: 81 Year
  Sex: Male

DRUGS (3)
  1. CEFUROXIME. [Suspect]
     Active Substance: CEFUROXIME
     Indication: SALMONELLA BACTERAEMIA
     Dosage: UNK
     Route: 042
  2. CIPROFLOXACIN. [Suspect]
     Active Substance: CIPROFLOXACIN
     Indication: SALMONELLA BACTERAEMIA
     Dosage: UNK
     Route: 048
  3. CIPROFLOXACIN. [Suspect]
     Active Substance: CIPROFLOXACIN
     Indication: SALMONELLA BACTERAEMIA
     Dosage: UNK
     Route: 048

REACTIONS (9)
  - Septic shock [Fatal]
  - Intra-abdominal haemorrhage [Fatal]
  - Cardio-respiratory arrest [Fatal]
  - Aortic dissection [Fatal]
  - Drug ineffective [None]
  - Aortic aneurysm [None]
  - Abdominal abscess [Fatal]
  - Renal impairment [Fatal]
  - Infective aneurysm [None]
